FAERS Safety Report 12172267 (Version 1)
Quarter: 2016Q1

REPORT INFORMATION
  Report Type: Report from Study
  Country: US (occurrence: US)
  Receive Date: 20160311
  Receipt Date: 20160311
  Transmission Date: 20160526
  Serious: Yes (Other)
  Sender: FDA-Public Use
  Company Number: US-GILEAD-2016-0202859

PATIENT
  Age: 76 Year
  Sex: Female

DRUGS (1)
  1. AMBRISENTAN [Suspect]
     Active Substance: AMBRISENTAN
     Indication: PRODUCT USED FOR UNKNOWN INDICATION
     Dosage: 10 MG, QD
     Route: 065
     Dates: start: 20101229

REACTIONS (7)
  - Oesophageal dilatation [Unknown]
  - Syncope [Unknown]
  - Fatigue [Unknown]
  - Precancerous cells present [Unknown]
  - Oedema peripheral [Unknown]
  - Blood glucose decreased [Unknown]
  - Dizziness [Unknown]
